FAERS Safety Report 10945212 (Version 2)
Quarter: 2015Q2

REPORT INFORMATION
  Report Type: Spontaneous
  Country: FR (occurrence: FR)
  Receive Date: 20150323
  Receipt Date: 20150604
  Transmission Date: 20150821
  Serious: Yes (Hospitalization, Other)
  Sender: FDA-Public Use
  Company Number: FR-SA-2015SA033989

PATIENT
  Age: 24 Month
  Sex: Male
  Weight: 16.6 kg

DRUGS (1)
  1. MYOZYME [Suspect]
     Active Substance: ALGLUCOSIDASE ALFA
     Dosage: 7 BOTTLES
     Route: 042
     Dates: start: 20130212

REACTIONS (5)
  - Pneumonia pneumococcal [Recovered/Resolved]
  - Diarrhoea [Unknown]
  - Infection [Unknown]
  - Pneumonia aspiration [Recovered/Resolved]
  - Angina pectoris [Unknown]

NARRATIVE: CASE EVENT DATE: 20150209
